FAERS Safety Report 21327044 (Version 2)
Quarter: 2022Q3

REPORT INFORMATION
  Report Type: Report from Study
  Country: US (occurrence: US)
  Receive Date: 20220913
  Receipt Date: 20220923
  Transmission Date: 20221026
  Serious: No
  Sender: FDA-Public Use
  Company Number: US-SA-SAC20220908000233

PATIENT
  Age: 42 Year
  Sex: Female
  Weight: 104 kg

DRUGS (3)
  1. DUPIXENT [Suspect]
     Active Substance: DUPILUMAB
     Indication: Staphylococcal infection
     Dosage: 600 MG, QOW
     Route: 058
     Dates: start: 20220813, end: 20220813
  2. DUPIXENT [Suspect]
     Active Substance: DUPILUMAB
     Indication: Dermatitis atopic
     Dosage: 300 MG, QOW
     Route: 058
     Dates: start: 20220827, end: 20220827
  3. SAVELLA [Concomitant]
     Active Substance: MILNACIPRAN HYDROCHLORIDE
     Indication: Fibromyalgia

REACTIONS (16)
  - Stress [Unknown]
  - Restless legs syndrome [Recovered/Resolved]
  - Anxiety [Recovered/Resolved]
  - Dermatitis allergic [Unknown]
  - Miliaria [Unknown]
  - Irritable bowel syndrome [Unknown]
  - Constipation [Unknown]
  - Dry mouth [Unknown]
  - Swelling [Unknown]
  - Sensitive skin [Not Recovered/Not Resolved]
  - Urticaria [Unknown]
  - Pruritus [Not Recovered/Not Resolved]
  - Dry eye [Recovered/Resolved]
  - Eye pruritus [Recovered/Resolved]
  - Rash [Not Recovered/Not Resolved]
  - Product use in unapproved indication [Unknown]

NARRATIVE: CASE EVENT DATE: 20220801
